FAERS Safety Report 25392542 (Version 3)
Quarter: 2025Q3

REPORT INFORMATION
  Report Type: Spontaneous
  Country: US (occurrence: US)
  Receive Date: 20250603
  Receipt Date: 20250707
  Transmission Date: 20251020
  Serious: No
  Sender: SANOFI AVENTIS
  Company Number: US-SA-2025SA156743

PATIENT
  Age: 24 Year
  Sex: Female

DRUGS (2)
  1. DUPIXENT [Suspect]
     Active Substance: DUPILUMAB
     Indication: Dermatitis atopic
     Dosage: 300 MG, QOW
     Route: 058
     Dates: start: 2019
  2. GLYCOLIC ACID [Suspect]
     Active Substance: GLYCOLIC ACID
     Route: 065

REACTIONS (3)
  - Oral discomfort [Unknown]
  - Dermatitis atopic [Unknown]
  - Intentional product misuse [Unknown]
